FAERS Safety Report 10048773 (Version 1)
Quarter: 2014Q1

REPORT INFORMATION
  Report Type: Spontaneous
  Country: US (occurrence: US)
  Receive Date: 20140331
  Receipt Date: 20140331
  Transmission Date: 20141002
  Serious: Yes (Other)
  Sender: FDA-Public Use
  Company Number: US-TARO-2014P1002595

PATIENT
  Age: 81 Year
  Sex: Female
  Weight: 57.61 kg

DRUGS (1)
  1. FLUOCINONIDE [Suspect]
     Indication: PSORIASIS
     Route: 061
     Dates: start: 201401

REACTIONS (2)
  - Eye burns [Recovered/Resolved]
  - Exposure via direct contact [Recovered/Resolved]
